FAERS Safety Report 16213659 (Version 1)
Quarter: 2019Q2

REPORT INFORMATION
  Report Type: Spontaneous
  Country: IT (occurrence: IT)
  Receive Date: 20190418
  Receipt Date: 20190418
  Transmission Date: 20190711
  Serious: Yes (Other)
  Sender: FDA-Public Use
  Company Number: PHHY2019IT086563

PATIENT
  Age: 20 Year
  Sex: Female

DRUGS (4)
  1. RISPERDAL [Suspect]
     Active Substance: RISPERIDONE
     Indication: PRODUCT USED FOR UNKNOWN INDICATION
     Dosage: 1 MG/ML, UNK(DOSAGE FORM: SOLUTION)
     Route: 048
     Dates: start: 20190401, end: 20190401
  2. NEBULGEN [Suspect]
     Active Substance: FLUNISOLIDE
     Indication: PRODUCT USED FOR UNKNOWN INDICATION
     Dosage: 1 MG, UNK((DOSAGE FORM: UNSPECIFIED))
     Route: 048
     Dates: start: 20190401, end: 20190401
  3. OKITASK [Suspect]
     Active Substance: KETOPROFEN LYSINE
     Indication: PRODUCT USED FOR UNKNOWN INDICATION
     Dosage: 5 DF, UNK
     Route: 048
     Dates: start: 20190401, end: 20190401
  4. GABAPENTIN. [Suspect]
     Active Substance: GABAPENTIN
     Indication: PRODUCT USED FOR UNKNOWN INDICATION
     Dosage: 8 DF, UNK
     Route: 048
     Dates: start: 20190401, end: 20190401

REACTIONS (3)
  - Intentional product misuse [Unknown]
  - Intentional self-injury [Unknown]
  - Sluggishness [Unknown]

NARRATIVE: CASE EVENT DATE: 20190401
